FAERS Safety Report 11160016 (Version 2)
Quarter: 2015Q2

REPORT INFORMATION
  Report Type: Spontaneous
  Country: CN (occurrence: CN)
  Receive Date: 20150603
  Receipt Date: 20150609
  Transmission Date: 20150821
  Serious: Yes (Disabling, Other)
  Sender: FDA-Public Use
  Company Number: PHHY2015CN065292

PATIENT
  Age: 74 Year
  Sex: Female
  Weight: 46 kg

DRUGS (1)
  1. ACLASTA [Suspect]
     Active Substance: ZOLEDRONIC ACID
     Indication: OSTEOPOROSIS POSTMENOPAUSAL
     Dosage: 5 MG, ONCE/YEARLY
     Route: 042
     Dates: start: 20150522

REACTIONS (13)
  - Altered state of consciousness [Recovering/Resolving]
  - Paralysis [Unknown]
  - Pyrexia [Recovered/Resolved]
  - Cerebral infarction [Not Recovered/Not Resolved]
  - Aphasia [Unknown]
  - Ischaemic stroke [Unknown]
  - Asthenia [Unknown]
  - Dysphagia [Unknown]
  - Speech disorder [Unknown]
  - Dysarthria [Unknown]
  - Paresis [Unknown]
  - Pyrexia [Unknown]
  - Hypertension [Unknown]

NARRATIVE: CASE EVENT DATE: 20150523
